FAERS Safety Report 10672207 (Version 1)
Quarter: 2014Q4

REPORT INFORMATION
  Report Type: Report from Study
  Country: PE (occurrence: PE)
  Receive Date: 20141223
  Receipt Date: 20141223
  Transmission Date: 20150529
  Serious: Yes (Other)
  Sender: FDA-Public Use
  Company Number: PE-SA-2014SA177064

PATIENT

DRUGS (2)
  1. CHLOROQUINE [Suspect]
     Active Substance: CHLOROQUINE\CHLOROQUINE PHOSPHATE
     Indication: PLASMODIUM VIVAX INFECTION
     Dosage: DAYS 1-3
     Route: 065
  2. PRIMAQUINE PHOSPHATE. [Suspect]
     Active Substance: PRIMAQUINE PHOSPHATE
     Indication: PLASMODIUM VIVAX INFECTION
     Dosage: 15 MG TO BE GIVEN FOR 14 DAYS
     Route: 065

REACTIONS (1)
  - Electrocardiogram QT prolonged [Unknown]
